FAERS Safety Report 20910713 (Version 2)
Quarter: 2022Q3

REPORT INFORMATION
  Report Type: Report from Study
  Country: FR (occurrence: None)
  Receive Date: 20220603
  Receipt Date: 20220726
  Transmission Date: 20221027
  Serious: Yes (Death, Hospitalization)
  Sender: FDA-Public Use
  Company Number: FR-ROCHE-3105454

PATIENT
  Age: 68 Year
  Sex: Female

DRUGS (3)
  1. ATEZOLIZUMAB [Suspect]
     Active Substance: ATEZOLIZUMAB
     Indication: Non-small cell lung cancer
     Dosage: EVERY 1 CYCLE(S) DAY1 OF CYCLE OF 21 DAY
     Route: 041
     Dates: start: 20210809, end: 20220406
  2. PEMETREXED [Concomitant]
     Active Substance: PEMETREXED
     Indication: Non-small cell lung cancer
     Dosage: 13/DEC/2021650 MILLIGRAM EVERY 1 CYCLE(S) DAY1 OF CYCLE OF 21 DAYS ; 700 MILLIGRAM EVERY 1 CYCLE(S)
     Route: 042
     Dates: start: 20210809
  3. CARBOPLATIN [Concomitant]
     Active Substance: CARBOPLATIN
     Indication: Non-small cell lung cancer
     Dosage: 08-NOV-2021; 570 MILLIGRAM EVERY 1 CYCLE(S) DAY1 OF CYCLE OF 21 DAYS ; 450 MILLIGRAM EVERY 1 CYCLE(S
     Route: 042
     Dates: start: 20210809

REACTIONS (1)
  - Ischaemic stroke [Fatal]

NARRATIVE: CASE EVENT DATE: 20220419
